FAERS Safety Report 5295302-3 (Version None)
Quarter: 2007Q2

REPORT INFORMATION
  Report Type: 
  Country: None (occurrence: None)
  Receive Date: 20070412
  Receipt Date: 20070402
  Transmission Date: 20071010
  Serious: Yes (Hospitalization, Other)
  Sender: FDA-Public Use
  Company Number: US-PFIZER INC-2005123914

PATIENT
  Sex: Female
  Weight: 73 kg

DRUGS (1)
  1. BEXTRA [Suspect]
     Indication: PAIN IN EXTREMITY

REACTIONS (3)
  - BALANCE DISORDER [None]
  - HEMIPARESIS [None]
  - LACUNAR INFARCTION [None]
